FAERS Safety Report 8009957-3 (Version None)
Quarter: 2011Q4

REPORT INFORMATION
  Report Type: 
  Country: None (occurrence: None)
  Receive Date: 20111228
  Receipt Date: 20111216
  Transmission Date: 20120403
  Serious: Yes (Other)
  Sender: FDA-Public Use
  Company Number: PHEH2011US010420

PATIENT
  Sex: Female

DRUGS (4)
  1. DIOVAN [Suspect]
     Dosage: 80 MG, QD
  2. KEFLEX [Concomitant]
     Dosage: UNK UKN, UNK
  3. DIOVAN HCT [Suspect]
     Dosage: 1 DF (80\12.5 MG), QD
  4. LORTAB [Concomitant]
     Indication: PAIN
     Dosage: 500 MG, QD

REACTIONS (7)
  - TOOTH INFECTION [None]
  - ORAL PAIN [None]
  - ALVEOLAR OSTEITIS [None]
  - IMPAIRED HEALING [None]
  - ARTHRITIS [None]
  - TOOTH DISORDER [None]
  - MALAISE [None]
